FAERS Safety Report 14536516 (Version 1)
Quarter: 2018Q1

REPORT INFORMATION
  Report Type: Spontaneous
  Country: US (occurrence: US)
  Receive Date: 20180215
  Receipt Date: 20180215
  Transmission Date: 20180509
  Serious: Yes (Hospitalization)
  Sender: FDA-Public Use
  Company Number: None

PATIENT
  Age: 68 Year
  Sex: Female
  Weight: 64.5 kg

DRUGS (4)
  1. IBUPROFEN. [Suspect]
     Active Substance: IBUPROFEN
     Indication: MUSCLE STRAIN
     Dosage: 2-4 TABLETS (?STRENGTH) DAILY X 2WEEKS PO
     Route: 048
  2. DOXEPIN [Concomitant]
     Active Substance: DOXEPIN
  3. BC (ASPIRIN\CAFFEINE) [Suspect]
     Active Substance: ASPIRIN\CAFFEINE
     Indication: MUSCLE STRAIN
     Route: 048
  4. ALPRAZOLAM. [Concomitant]
     Active Substance: ALPRAZOLAM

REACTIONS (3)
  - Acute kidney injury [None]
  - Dehydration [None]
  - Gastritis [None]

NARRATIVE: CASE EVENT DATE: 20170711
